FAERS Safety Report 18209563 (Version 1)
Quarter: 2020Q3

REPORT INFORMATION
  Report Type: Spontaneous
  Country: JP (occurrence: JP)
  Receive Date: 20200828
  Receipt Date: 20200828
  Transmission Date: 20201103
  Serious: Yes (Hospitalization)
  Sender: FDA-Public Use
  Company Number: JP-ELI_LILLY_AND_COMPANY-JP202008010221

PATIENT
  Age: 75 Year
  Sex: Female
  Weight: 53.1 kg

DRUGS (10)
  1. UPTRAVI [Suspect]
     Active Substance: SELEXIPAG
     Dosage: 0.4 MG, BID (/12 HOURS)
     Route: 048
     Dates: start: 20171106, end: 20171112
  2. UPTRAVI [Suspect]
     Active Substance: SELEXIPAG
     Dosage: 0.8 MG, BID (/12 HOURS)
     Route: 048
     Dates: start: 20171130
  3. VOLIBRIS [Suspect]
     Active Substance: AMBRISENTAN
     Indication: PULMONARY ARTERIAL HYPERTENSION
     Dosage: 2.5 MG, DAILY
     Route: 048
     Dates: start: 20171114, end: 20190227
  4. UPTRAVI [Suspect]
     Active Substance: SELEXIPAG
     Dosage: 0.6 MG, BID (/12 HOURS)
     Route: 048
     Dates: start: 20171113, end: 20171129
  5. ADCIRCA [Suspect]
     Active Substance: TADALAFIL
     Indication: PULMONARY ARTERIAL HYPERTENSION
     Dosage: 40 MG, DAILY
     Route: 065
     Dates: start: 20171020
  6. AZULFIDINE EN?TABS [Concomitant]
     Active Substance: SULFASALAZINE
     Indication: RHEUMATOID ARTHRITIS
     Dosage: 500 MG, DAILY
     Dates: start: 20140411
  7. PREDNISOLONE. [Concomitant]
     Active Substance: PREDNISOLONE
     Indication: SCLERODERMA
     Dosage: 5 MG, DAILY
     Dates: start: 20140411
  8. CARERAM [Concomitant]
     Active Substance: IGURATIMOD
     Indication: RHEUMATOID ARTHRITIS
     Dosage: 50 MG, DAILY
     Dates: start: 20140626
  9. UPTRAVI [Suspect]
     Active Substance: SELEXIPAG
     Indication: PULMONARY ARTERIAL HYPERTENSION
     Dosage: 0.2 MG, BID (/12 HOURS)
     Route: 048
     Dates: start: 20171030, end: 20171105
  10. OPSUMIT [Concomitant]
     Active Substance: MACITENTAN
     Indication: PULMONARY ARTERIAL HYPERTENSION
     Dosage: 2.5 MG, DAILY
     Route: 065
     Dates: start: 20190228

REACTIONS (4)
  - Anaemia [Not Recovered/Not Resolved]
  - Haematemesis [Recovered/Resolved]
  - Haemoptysis [Unknown]
  - Gastrointestinal haemorrhage [Recovering/Resolving]

NARRATIVE: CASE EVENT DATE: 20181002
